FAERS Safety Report 11361220 (Version 1)
Quarter: 2015Q3

REPORT INFORMATION
  Report Type: Spontaneous
  Country: LB (occurrence: LB)
  Receive Date: 20150810
  Receipt Date: 20150810
  Transmission Date: 20151125
  Serious: Yes (Death)
  Sender: FDA-Public Use
  Company Number: LB-SA-2015SA117208

PATIENT
  Age: 52 Year
  Sex: Male

DRUGS (3)
  1. CARBOPLATIN. [Concomitant]
     Active Substance: CARBOPLATIN
     Dates: start: 20070419
  2. TAXOTERE [Suspect]
     Active Substance: DOCETAXEL
     Indication: NON-SMALL CELL LUNG CANCER
     Route: 065
     Dates: start: 20070309, end: 20070419
  3. CISPLATIN. [Concomitant]
     Active Substance: CISPLATIN
     Dates: start: 20070309

REACTIONS (1)
  - Death [Fatal]

NARRATIVE: CASE EVENT DATE: 20070503
